FAERS Safety Report 13230118 (Version 1)
Quarter: 2017Q1

REPORT INFORMATION
  Report Type: Spontaneous
  Country: US (occurrence: US)
  Receive Date: 20170214
  Receipt Date: 20170214
  Transmission Date: 20170428
  Serious: Yes (Other)
  Sender: FDA-Public Use
  Company Number: US-SHIRE-US201701086

PATIENT
  Age: 39 Year
  Sex: Female

DRUGS (3)
  1. HUMIRA [Suspect]
     Active Substance: ADALIMUMAB
     Indication: CROHN^S DISEASE
     Dosage: 40 MG, REPORTED AS 1 IN 2 WK(HUMIRA 40MG/0.8M, SOLUTION FOR INJECTION IN PRE-FILLED PEN)(ADALIMUMAB)
     Route: 058
     Dates: start: 201512
  2. PENTASA [Suspect]
     Active Substance: MESALAMINE
     Indication: CROHN^S DISEASE
     Dosage: UNK DOSE AND UNITS , UNKNOWN FREQUENCY
     Route: 048
  3. PENTASA [Suspect]
     Active Substance: MESALAMINE
     Dosage: UNK DOSE AND UNITS, UNKNOWN FREQUENCY
     Route: 048

REACTIONS (2)
  - Haematochezia [Not Recovered/Not Resolved]
  - Product use issue [Not Recovered/Not Resolved]

NARRATIVE: CASE EVENT DATE: 20160725
